FAERS Safety Report 4389852-1 (Version None)
Quarter: 2004Q2

REPORT INFORMATION
  Report Type: 
  Country: None (occurrence: None)
  Receive Date: 20040630
  Receipt Date: 20040621
  Transmission Date: 20050107
  Serious: Yes (Life-Threatening)
  Sender: FDA-Public Use
  Company Number: 2004-04-1693

PATIENT
  Age: 44 Year
  Sex: Male
  Weight: 70 kg

DRUGS (5)
  1. REBETOL [Suspect]
     Indication: HEPATITIS C
     Dosage: 800 MG QD ORAL
     Route: 048
     Dates: start: 20030224, end: 20030811
  2. INTRON A [Suspect]
     Indication: HEPATITIS C
     Dosage: 6-3MU*6-3X/WK INTRAMUSCULAR
     Route: 030
     Dates: start: 20030224, end: 20040423
  3. GASTER [Concomitant]
  4. MARZULENE [Concomitant]
  5. LOXONIN [Concomitant]

REACTIONS (6)
  - ANAEMIA [None]
  - DYSGEUSIA [None]
  - HEPATIC NEOPLASM MALIGNANT [None]
  - MALAISE [None]
  - PLATELET COUNT DECREASED [None]
  - PSORIASIS [None]
